FAERS Safety Report 16053516 (Version 1)
Quarter: 2019Q1

REPORT INFORMATION
  Report Type: Report from Study
  Country: BR (occurrence: BR)
  Receive Date: 20190308
  Receipt Date: 20190308
  Transmission Date: 20190418
  Serious: Yes (Hospitalization, Other)
  Sender: FDA-Public Use
  Company Number: PHHY2019BR051417

PATIENT
  Age: 82 Year
  Sex: Female
  Weight: 62 kg

DRUGS (10)
  1. EXELON PATCH [Suspect]
     Active Substance: RIVASTIGMINE
     Indication: COGNITIVE DISORDER
  2. EXELON [Suspect]
     Active Substance: RIVASTIGMINE TARTRATE
     Dosage: 4.5 MG, BID
     Route: 048
  3. EXELON [Suspect]
     Active Substance: RIVASTIGMINE TARTRATE
     Dosage: 6 MG, BID
     Route: 048
  4. CITRACAL [Concomitant]
     Active Substance: CALCIUM CITRATE
     Indication: OSTEOPOROSIS
     Dosage: 600 MG, UNK
     Route: 065
     Dates: start: 2013
  5. ACTONEL [Concomitant]
     Active Substance: RISEDRONATE SODIUM
     Indication: OSTEOPOROSIS
     Dosage: 150 ML, UNK
     Route: 065
     Dates: start: 201303
  6. ZOLOFT [Concomitant]
     Active Substance: SERTRALINE HYDROCHLORIDE
     Indication: ANXIETY
     Dosage: 50 MG, UNK
     Route: 065
  7. EXELON PATCH [Suspect]
     Active Substance: RIVASTIGMINE
     Indication: DEMENTIA ALZHEIMER^S TYPE
     Dosage: UNK
     Route: 062
     Dates: start: 2013, end: 2014
  8. EXELON [Suspect]
     Active Substance: RIVASTIGMINE TARTRATE
     Indication: DEMENTIA ALZHEIMER^S TYPE
     Dosage: 1.5 MG, BID
     Route: 048
  9. EXELON [Suspect]
     Active Substance: RIVASTIGMINE TARTRATE
     Dosage: 3 MG, BID
     Route: 048
  10. DEPURA [Concomitant]
     Active Substance: CHOLECALCIFEROL
     Indication: OSTEOPOROSIS
     Dosage: 20 ML, UNK
     Route: 065
     Dates: start: 2013

REACTIONS (9)
  - Pneumonia [Recovered/Resolved]
  - Thrombosis [Recovered/Resolved]
  - Thrombosis [Recovered/Resolved]
  - Amylase abnormal [Recovered/Resolved]
  - Influenza [Unknown]
  - Cataract [Recovered/Resolved]
  - Diarrhoea [Recovered/Resolved]
  - Application site erythema [Recovered/Resolved]
  - Application site hypersensitivity [Recovered/Resolved]

NARRATIVE: CASE EVENT DATE: 2013
